FAERS Safety Report 11178869 (Version 2)
Quarter: 2015Q3

REPORT INFORMATION
  Report Type: Spontaneous
  Country: US (occurrence: US)
  Receive Date: 20150610
  Receipt Date: 20150915
  Transmission Date: 20151125
  Serious: Yes (Hospitalization)
  Sender: FDA-Public Use
  Company Number: US-CELGENEUS-USA-2015060574

PATIENT
  Age: 3 Year
  Sex: Male

DRUGS (2)
  1. VP16 [Suspect]
     Active Substance: ETOPOSIDE
     Indication: BRAIN NEOPLASM
     Route: 065
  2. THALOMID [Suspect]
     Active Substance: THALIDOMIDE
     Indication: BRAIN NEOPLASM
     Dosage: 50 MILLIGRAM
     Route: 048
     Dates: start: 20150226

REACTIONS (1)
  - Diarrhoea [Recovered/Resolved]

NARRATIVE: CASE EVENT DATE: 20150507
